FAERS Safety Report 7335783-4 (Version None)
Quarter: 2011Q1

REPORT INFORMATION
  Report Type: 
  Country: None (occurrence: None)
  Receive Date: 20110301
  Receipt Date: 20110301
  Transmission Date: 20110831
  Serious: No
  Sender: FDA-Public Use
  Company Number: None

PATIENT
  Sex: Female
  Weight: 79.11 kg

DRUGS (3)
  1. CARBOPLATIN [Suspect]
     Dosage: 850 MG
  2. NEULASTA [Suspect]
     Dosage: 6 MG
  3. TAXOL [Suspect]
     Dosage: 330 MG

REACTIONS (1)
  - LYMPHOCYTE COUNT DECREASED [None]
